FAERS Safety Report 9220534 (Version 2)
Quarter: 2013Q3

REPORT INFORMATION
  Report Type: Spontaneous
  Country: US (occurrence: US)
  Receive Date: 20130409
  Receipt Date: 20130731
  Transmission Date: 20140515
  Serious: No
  Sender: FDA-Public Use
  Company Number: US-009507513-1304USA003970

PATIENT
  Sex: Male

DRUGS (2)
  1. LOTRIMIN AF SPRAY POWDER [Suspect]
     Indication: TINEA CRURIS
     Dosage: UNK, UNKNOWN
     Route: 061
  2. LOTRIMIN AF SPRAY POWDER [Suspect]
     Indication: PRURITUS

REACTIONS (1)
  - Drug ineffective [Unknown]
